FAERS Safety Report 5828934-1 (Version None)
Quarter: 2008Q3

REPORT INFORMATION
  Report Type: 
  Country: None (occurrence: None)
  Receive Date: 20080731
  Receipt Date: 20080725
  Transmission Date: 20090109
  Serious: Yes (Hospitalization)
  Sender: FDA-Public Use
  Company Number: US-BRISTOL-MYERS SQUIBB COMPANY-14278287

PATIENT
  Age: 58 Year
  Sex: Male
  Weight: 75 kg

DRUGS (2)
  1. ERBITUX [Suspect]
     Indication: HEAD AND NECK CANCER
     Dosage: START DATE 17JUN08. DATE OF COURSE ASSOCIATED WITH REPORT 24JUN08.
     Dates: start: 20080715, end: 20080715
  2. CISPLATIN [Suspect]
     Indication: HEAD AND NECK CANCER
     Dosage: START DATE 17JUN08. DATE OF COURSE ASSOCIATED WITH REPORT 24JUN08.
     Dates: start: 20080715, end: 20080715

REACTIONS (1)
  - SYNCOPE [None]
